FAERS Safety Report 10337890 (Version 2)
Quarter: 2014Q3

REPORT INFORMATION
  Report Type: Spontaneous
  Country: US (occurrence: US)
  Receive Date: 20140724
  Receipt Date: 20140724
  Transmission Date: 20150326
  Serious: No
  Sender: FDA-Public Use
  Company Number: US-UNITED THERAPEUTICS-UTC-045037

PATIENT
  Sex: Female
  Weight: 76.2 kg

DRUGS (2)
  1. TYVASO [Suspect]
     Active Substance: TREPROSTINIL
     Dosage: 18-54 MICROGRAMS
     Dates: start: 20130313
  2. TRACLEER [Suspect]
     Active Substance: BOSENTAN\BOSENTAN MONOHYDRATE

REACTIONS (10)
  - Dyspnoea exertional [Recovered/Resolved]
  - Muscular weakness [Unknown]
  - Headache [Unknown]
  - Pain in jaw [Unknown]
  - Arthralgia [Unknown]
  - Anxiety [Unknown]
  - Oedema [Unknown]
  - Heart rate increased [Unknown]
  - Back pain [Unknown]
  - Respiratory rate increased [Unknown]
